FAERS Safety Report 5332849-5 (Version None)
Quarter: 2007Q2

REPORT INFORMATION
  Report Type: 
  Country: None (occurrence: None)
  Receive Date: 20070521
  Receipt Date: 20070514
  Transmission Date: 20071010
  Serious: Yes (Other)
  Sender: FDA-Public Use
  Company Number: 2007SP009391

PATIENT
  Age: 79 Year
  Sex: Male

DRUGS (11)
  1. NITRO-DUR [Suspect]
     Indication: DRUG USE FOR UNKNOWN INDICATION
     Dosage: 0.4 MG; TDER
     Route: 062
  2. PREDNISONE (CON.) [Concomitant]
  3. NOVOHYDRAZIDE (CON.) [Concomitant]
  4. ALTACE (CON.) [Concomitant]
  5. ASAPHEN (CON.) [Concomitant]
  6. VENTOLIN (CON.) [Concomitant]
  7. ADVAIR (CON.) [Concomitant]
  8. UNIPHYL (CON.) [Concomitant]
  9. LIPITOR (CON.) [Concomitant]
  10. INSULIN (CON.) [Concomitant]
  11. SPIRIVA (CON.) [Concomitant]

REACTIONS (4)
  - APATHY [None]
  - DISTURBANCE IN ATTENTION [None]
  - NIGHTMARE [None]
  - SUICIDE ATTEMPT [None]
